FAERS Safety Report 8906200 (Version 1)
Quarter: 2012Q4

REPORT INFORMATION
  Report Type: Spontaneous
  Country: US (occurrence: None)
  Receive Date: 20121112
  Receipt Date: 20121112
  Transmission Date: 20130627
  Serious: Yes (Other)
  Sender: FDA-Public Use
  Company Number: None

PATIENT
  Age: 43 Year
  Sex: Female
  Weight: 79.38 kg

DRUGS (1)
  1. DEXTROAMPHETAMINE [Suspect]
     Indication: ADHD
     Dosage: 1 2x daily po
     Route: 048
     Dates: start: 20121106, end: 20121110

REACTIONS (2)
  - Drug ineffective [None]
  - Product formulation issue [None]
